FAERS Safety Report 4457204-1 (Version None)
Quarter: 2004Q3

REPORT INFORMATION
  Report Type: 
  Country: None (occurrence: None)
  Receive Date: 20040922
  Receipt Date: 20040910
  Transmission Date: 20050211
  Serious: Yes (Other)
  Sender: FDA-Public Use
  Company Number: 002#4#2004-00183

PATIENT
  Age: 49 Year
  Sex: Male

DRUGS (4)
  1. REGLAN [Suspect]
     Indication: NAUSEA
  2. PEG-INTRON [Suspect]
     Indication: HEPATITIS C
     Dosage: 150MCG, 1 IN 1 W, SUBCUTANEOUS
     Route: 058
     Dates: start: 20010904, end: 20011004
  3. RIBAVIRIN [Suspect]
     Indication: HEPATITIS C
     Dosage: 1 IN  1 D, ORAL
     Route: 048
     Dates: start: 20010904, end: 20011005
  4. OXYCODONE HCL [Suspect]
     Indication: PAIN
     Dosage: ORAL
     Route: 048
     Dates: start: 20011005, end: 20011005

REACTIONS (15)
  - BATTERED WIFE [None]
  - BRONCHITIS ACUTE [None]
  - CHEST DISCOMFORT [None]
  - CHEST PAIN [None]
  - CONDITION AGGRAVATED [None]
  - DEPRESSION [None]
  - DISSOCIATIVE IDENTITY DISORDER [None]
  - DRUG ABUSER [None]
  - DRUG INTOLERANCE [None]
  - FLAT AFFECT [None]
  - GASTROENTERITIS [None]
  - NEUROSIS [None]
  - PERSONALITY CHANGE [None]
  - REFUSAL OF TREATMENT BY PATIENT [None]
  - SOCIAL AVOIDANT BEHAVIOUR [None]
